FAERS Safety Report 24979960 (Version 1)
Quarter: 2025Q1

REPORT INFORMATION
  Report Type: Spontaneous
  Country: US (occurrence: US)
  Receive Date: 20250218
  Receipt Date: 20250218
  Transmission Date: 20250409
  Serious: Yes (Hospitalization)
  Sender: KARYOPHARM THERAPEUTICS
  Company Number: US-KARYOPHARM-2025KPT000158

PATIENT

DRUGS (19)
  1. XPOVIO [Suspect]
     Active Substance: SELINEXOR
     Indication: Plasma cell myeloma
     Dosage: 60 MG, WEEKLY
     Route: 048
  2. ACYCLOVIR [Concomitant]
     Active Substance: ACYCLOVIR
  3. ATOVAQUONE [Concomitant]
     Active Substance: ATOVAQUONE
  4. BAYER ASPIRIN [Concomitant]
     Active Substance: ASPIRIN
  5. CYCLOPHOSPHAMIDE [Concomitant]
     Active Substance: CYCLOPHOSPHAMIDE
  6. DARZALEX FASPRO [Concomitant]
     Active Substance: DARATUMUMAB\HYALURONIDASE-FIHJ
  7. DECADRON [Concomitant]
     Active Substance: DEXAMETHASONE
  8. DULOXETINE [Concomitant]
     Active Substance: DULOXETINE
  9. ELIQUIS [Concomitant]
     Active Substance: APIXABAN
  10. HYDROMORPHONE [Concomitant]
     Active Substance: HYDROMORPHONE
  11. INSULIN LISPRO [Concomitant]
     Active Substance: INSULIN LISPRO
  12. KYPROLIS [Concomitant]
     Active Substance: CARFILZOMIB
  13. LIDOCAINE [Concomitant]
     Active Substance: LIDOCAINE
  14. ONDANSETRON [Concomitant]
     Active Substance: ONDANSETRON
  15. PANTOPRAZOLE [Concomitant]
     Active Substance: PANTOPRAZOLE
  16. PROMETHAZINE [Concomitant]
     Active Substance: PROMETHAZINE HYDROCHLORIDE
  17. QUETIAPINE [Concomitant]
     Active Substance: QUETIAPINE
  18. RENVELA [Concomitant]
     Active Substance: SEVELAMER CARBONATE
  19. VELCADE [Concomitant]
     Active Substance: BORTEZOMIB

REACTIONS (2)
  - Blood calcium decreased [Unknown]
  - Fatigue [Unknown]
